FAERS Safety Report 6793391-8 (Version None)
Quarter: 2010Q2

REPORT INFORMATION
  Report Type: 
  Country: None (occurrence: None)
  Receive Date: 20100624
  Receipt Date: 20100126
  Transmission Date: 20101027
  Serious: Yes (Death)
  Sender: FDA-Public Use
  Company Number: US-MYLANLABS-2010S1001437

PATIENT
  Age: 65 Year
  Sex: Male

DRUGS (18)
  1. CLOZAPINE [Suspect]
     Route: 048
     Dates: start: 20080623
  2. CLOZAPINE [Suspect]
     Route: 048
     Dates: start: 20080623
  3. LASIX [Concomitant]
  4. SPIRIVA [Concomitant]
  5. ADVAIR DISKUS 100/50 [Concomitant]
     Dosage: 250MG/50MG
  6. WARFARIN SODIUM [Concomitant]
  7. GLIPIZIDE [Concomitant]
  8. KLOR-CON [Concomitant]
  9. PROCHLORPERAZINE [Concomitant]
  10. METFORMIN HCL [Concomitant]
  11. LISINOPRIL [Concomitant]
  12. ISOSORBIDE [Concomitant]
  13. SIMVASTATIN [Concomitant]
  14. METOPROLOL [Concomitant]
  15. RISPERIDONE [Concomitant]
  16. DOCUSATE [Concomitant]
  17. DUONEB [Concomitant]
  18. NICOTINE [Concomitant]

REACTIONS (1)
  - DEATH [None]
